FAERS Safety Report 16339218 (Version 3)
Quarter: 2019Q2

REPORT INFORMATION
  Report Type: Spontaneous
  Country: AU (occurrence: AU)
  Receive Date: 20190521
  Receipt Date: 20190607
  Transmission Date: 20190711
  Serious: Yes (Hospitalization)
  Sender: FDA-Public Use
  Company Number: AU-CELGENEUS-AUS-20190311002

PATIENT
  Age: 82 Year
  Sex: Male
  Weight: 73.5 kg

DRUGS (30)
  1. PLACEBO [Concomitant]
     Active Substance: UNSPECIFIED INGREDIENT
     Indication: ACUTE MYELOID LEUKAEMIA
     Dosage: UNKNOWN
     Route: 065
     Dates: start: 20171215, end: 20190327
  2. PREDNISOLONE. [Concomitant]
     Active Substance: PREDNISOLONE
     Indication: PROPHYLAXIS
     Dosage: 2.5 MILLIGRAM
     Route: 065
     Dates: start: 20190301
  3. OXYCODONE [Concomitant]
     Active Substance: OXYCODONE
     Indication: PAIN
     Route: 048
     Dates: start: 20190327
  4. MIDAZOLAM [Concomitant]
     Active Substance: MIDAZOLAM HYDROCHLORIDE
     Indication: PREMEDICATION
     Route: 041
     Dates: start: 20171212
  5. FILGRASTIM [Concomitant]
     Active Substance: FILGRASTIM
     Indication: NEUTROPHIL COUNT DECREASED
     Route: 058
     Dates: start: 20180903
  6. ALLOPURINOL. [Concomitant]
     Active Substance: ALLOPURINOL
     Indication: PROPHYLAXIS
     Route: 048
     Dates: start: 20171212, end: 20180208
  7. FENTANYL. [Concomitant]
     Active Substance: FENTANYL
     Indication: PREMEDICATION
     Route: 041
     Dates: start: 20171212
  8. GRANISETRON [Concomitant]
     Active Substance: GRANISETRON
     Indication: PROPHYLAXIS OF NAUSEA AND VOMITING
     Route: 048
     Dates: start: 20171215
  9. DOCUSATE [Concomitant]
     Active Substance: DOCUSATE
     Indication: CONSTIPATION PROPHYLAXIS
     Route: 048
     Dates: start: 20171228
  10. LACTULOSE. [Concomitant]
     Active Substance: LACTULOSE
     Indication: CONSTIPATION PROPHYLAXIS
     Route: 048
     Dates: start: 20171222
  11. RANITIDINE. [Concomitant]
     Active Substance: RANITIDINE
     Indication: PROPHYLAXIS
     Route: 048
     Dates: start: 20180118
  12. TEMAZEPAM. [Concomitant]
     Active Substance: TEMAZEPAM
     Indication: PROPHYLAXIS
     Route: 048
     Dates: start: 20181129
  13. MAGMIN [Concomitant]
     Active Substance: MAGNESIUM ASPARTATE
     Indication: MINERAL SUPPLEMENTATION
     Dosage: 2-3 TABLETS
     Route: 048
     Dates: start: 20181124
  14. GRANISETRON [Concomitant]
     Active Substance: GRANISETRON
     Route: 048
     Dates: start: 20190304
  15. METOCLOPRAMIDE. [Concomitant]
     Active Substance: METOCLOPRAMIDE
     Indication: PROPHYLAXIS OF NAUSEA AND VOMITING
     Route: 048
     Dates: start: 20180904
  16. PANADOL [Concomitant]
     Active Substance: ACETAMINOPHEN
     Indication: PAIN PROPHYLAXIS
     Route: 048
     Dates: start: 20181121
  17. TRANEXAMIC ACID. [Concomitant]
     Active Substance: TRANEXAMIC ACID
     Indication: PROPHYLAXIS
     Route: 048
     Dates: start: 20190307
  18. ALLOPURINOL. [Concomitant]
     Active Substance: ALLOPURINOL
     Route: 048
     Dates: start: 20190301, end: 20190328
  19. COLOXYL WITH SENNA [Concomitant]
     Active Substance: DOCUSATE\SENNOSIDES
     Indication: CONSTIPATION PROPHYLAXIS
     Route: 048
     Dates: start: 20171217
  20. VORICONAZOLE. [Concomitant]
     Active Substance: VORICONAZOLE
     Route: 048
     Dates: start: 20190320, end: 20190328
  21. VORICONAZOLE. [Concomitant]
     Active Substance: VORICONAZOLE
     Route: 048
     Dates: start: 20190329
  22. ENDONE [Concomitant]
     Active Substance: OXYCODONE HYDROCHLORIDE
     Indication: PAIN
     Route: 048
     Dates: start: 20190328, end: 20190328
  23. AZACITIDINE. [Suspect]
     Active Substance: AZACITIDINE
     Route: 058
     Dates: start: 20190304, end: 20190310
  24. PARACETAMOL [Concomitant]
     Active Substance: ACETAMINOPHEN
     Indication: PAIN PROPHYLAXIS
     Route: 048
     Dates: start: 20171214
  25. GTN [Concomitant]
     Active Substance: NITROGLYCERIN
     Indication: HYPERTENSION
     Route: 062
     Dates: start: 20190328, end: 20190328
  26. SODIUM CHLORIDE. [Concomitant]
     Active Substance: SODIUM CHLORIDE
     Indication: PROPHYLAXIS
     Route: 041
     Dates: start: 20171222, end: 20171224
  27. AZACITIDINE. [Suspect]
     Active Substance: AZACITIDINE
     Indication: ACUTE MYELOID LEUKAEMIA
     Route: 058
     Dates: start: 20171215, end: 20181104
  28. MOVICOL [Concomitant]
     Active Substance: POLYETHYLENE GLYCOL 3350\POTASSIUM CHLORIDE\SODIUM BICARBONATE\SODIUM CHLORIDE
     Indication: CONSTIPATION PROPHYLAXIS
     Route: 048
     Dates: start: 20171218
  29. VORICONAZOLE. [Concomitant]
     Active Substance: VORICONAZOLE
     Indication: LUNG ABSCESS
     Route: 048
     Dates: start: 20190301, end: 20190319
  30. SODIUM CHLORIDE. [Concomitant]
     Active Substance: SODIUM CHLORIDE
     Route: 041
     Dates: start: 20190301, end: 20190303

REACTIONS (3)
  - Proctitis [Not Recovered/Not Resolved]
  - Lumbar vertebral fracture [Recovered/Resolved]
  - Fall [Recovered/Resolved]

NARRATIVE: CASE EVENT DATE: 20190316
